FAERS Safety Report 25988599 (Version 1)
Quarter: 2025Q4

REPORT INFORMATION
  Report Type: Spontaneous
  Country: US (occurrence: US)
  Receive Date: 20251103
  Receipt Date: 20251103
  Transmission Date: 20260118
  Serious: No
  Sender: RIGEL PHARMACEUTICALS
  Company Number: US-RIGEL Pharmaceuticals INC-20241200054

PATIENT
  Sex: Male

DRUGS (2)
  1. GAVRETO [Suspect]
     Active Substance: PRALSETINIB
     Indication: Thyroid cancer
     Dosage: 300 MG, QD
     Route: 048
  2. GAVRETO [Suspect]
     Active Substance: PRALSETINIB
     Dosage: 400 MG,
     Route: 048

REACTIONS (5)
  - Gait disturbance [Not Recovered/Not Resolved]
  - Blood test abnormal [Not Recovered/Not Resolved]
  - Pica [Not Recovered/Not Resolved]
  - Product dose omission issue [Unknown]
  - Back pain [Not Recovered/Not Resolved]
